FAERS Safety Report 16528713 (Version 7)
Quarter: 2019Q3

REPORT INFORMATION
  Report Type: Report from Study
  Country: CA (occurrence: CA)
  Receive Date: 20190703
  Receipt Date: 20190821
  Transmission Date: 20191004
  Serious: Yes (Hospitalization, Other)
  Sender: FDA-Public Use
  Company Number: CA-B.I. PHARMACEUTICALS,INC./RIDGEFIELD-2019-BI-026253

PATIENT
  Age: 76 Year
  Sex: Female
  Weight: 108.4 kg

DRUGS (23)
  1. PERINDOPRIL [Concomitant]
     Active Substance: PERINDOPRIL
     Indication: CARDIAC FAILURE
     Dosage: RELEASE TYPE: ER
     Route: 048
     Dates: start: 20180621
  2. ROSUVASTATIN. [Concomitant]
     Active Substance: ROSUVASTATIN
     Indication: DYSLIPIDAEMIA
     Dosage: RELEASE TYPE: ER
     Route: 048
     Dates: start: 201801
  3. NITRO [Concomitant]
     Active Substance: NITROGLYCERIN
     Indication: ANGINA PECTORIS
     Dosage: RELEASE TYPE: IR
     Route: 048
     Dates: start: 20171207
  4. COLCHICINE. [Concomitant]
     Active Substance: COLCHICINE
     Indication: OSTEOARTHRITIS
     Dosage: RELEASE TYPE: ER
     Route: 048
     Dates: start: 201804
  5. CENTRUM [Concomitant]
     Active Substance: VITAMINS
     Indication: PROPHYLAXIS
     Dosage: RELEASE TYPE: ER
     Route: 048
     Dates: start: 1990
  6. POTASSIUM [Concomitant]
     Active Substance: POTASSIUM
     Indication: CARDIAC FAILURE
     Dosage: RELEASE TYPE: ER
     Route: 048
     Dates: start: 20140820
  7. PANTOPRAZOLE [Concomitant]
     Active Substance: PANTOPRAZOLE
     Indication: GASTROOESOPHAGEAL REFLUX DISEASE
     Dosage: RELEASE TYPE: ER
     Route: 048
     Dates: start: 2014
  8. RANITIDINE. [Concomitant]
     Active Substance: RANITIDINE
     Indication: GASTROOESOPHAGEAL REFLUX DISEASE
     Dosage: RELEASE TYPE: ER
     Route: 048
     Dates: start: 2011
  9. FISH OIL OMEGA 3 [Concomitant]
     Active Substance: FISH OIL
     Indication: PROPHYLAXIS
     Dosage: RELEASE TYPE: ER
     Route: 048
     Dates: start: 2016
  10. CALTRATE WITH VITAMIN D [Concomitant]
     Active Substance: CALCIUM CARBONATE\CHOLECALCIFEROL
     Indication: PROPHYLAXIS
     Dosage: RELEASE TYPE: ER
     Route: 048
     Dates: start: 2009
  11. PROBACLAC [Concomitant]
     Indication: PROPHYLAXIS
     Dosage: RELEASE TYPE: ER?DOSE: 6.5 BILLION
     Route: 048
     Dates: start: 2015
  12. EMPAGLIFLOZIN [Suspect]
     Active Substance: EMPAGLIFLOZIN
     Indication: CARDIAC FAILURE
     Route: 048
     Dates: start: 20190416, end: 20190521
  13. METOPROLOL. [Concomitant]
     Active Substance: METOPROLOL
     Indication: CARDIAC FAILURE
     Dosage: RELEASE TYPE: ER
     Route: 048
     Dates: start: 20171218, end: 20190514
  14. METOPROLOL. [Concomitant]
     Active Substance: METOPROLOL
     Dosage: RELEASE TYPE: ER
     Route: 048
     Dates: start: 20171218, end: 20190514
  15. FUROSEMIDE. [Concomitant]
     Active Substance: FUROSEMIDE
     Dosage: RELEASE TYPE: ER
     Route: 048
     Dates: start: 20190514
  16. METOPROLOL. [Concomitant]
     Active Substance: METOPROLOL
     Dosage: RELEASE TYPE: ER
     Route: 048
     Dates: start: 20190514
  17. FUROSEMIDE. [Concomitant]
     Active Substance: FUROSEMIDE
     Indication: CARDIAC FAILURE
     Dosage: RELEASE TYPE: ER
     Route: 048
     Dates: start: 20190313, end: 20190514
  18. SUCRALFATE. [Concomitant]
     Active Substance: SUCRALFATE
     Indication: GASTRIC ULCER
     Dosage: RELEASE TYPE: ER
     Route: 048
     Dates: start: 201902
  19. LOPERAMIDE [Concomitant]
     Active Substance: LOPERAMIDE
     Indication: DIARRHOEA
     Dosage: RELEASE TYPE: ER
     Route: 048
     Dates: start: 2010
  20. ROBAXIN [Concomitant]
     Active Substance: METHOCARBAMOL
     Indication: BACK PAIN
     Dosage: RELEASE TYPE: ER
     Route: 048
     Dates: start: 2014
  21. VITAMIN D [Concomitant]
     Active Substance: VITAMIN D NOS
     Indication: PROPHYLAXIS
     Dosage: RELEASE TYPE: ER
     Route: 048
     Dates: start: 2012
  22. XARELTO [Concomitant]
     Active Substance: RIVAROXABAN
     Indication: ATRIAL FIBRILLATION
     Dosage: RELEASE TYPE: ER
     Route: 048
     Dates: start: 20180621
  23. GLUCOSAMINE + CHONDROITIN [Concomitant]
     Indication: OSTEOARTHRITIS
     Dosage: RELEASE TYPE: IR
     Route: 048
     Dates: start: 2000

REACTIONS (2)
  - Cardiac failure congestive [Recovered/Resolved]
  - Urosepsis [Recovered/Resolved]

NARRATIVE: CASE EVENT DATE: 20190416
